FAERS Safety Report 23797620 (Version 1)
Quarter: 2024Q2

REPORT INFORMATION
  Report Type: Report from Study
  Country: US (occurrence: US)
  Receive Date: 20240430
  Receipt Date: 20240430
  Transmission Date: 20240716
  Serious: No
  Sender: FDA-Public Use
  Company Number: US-MIRUM PHARMACEUTICALS, INC.-US-MIR-24-00120

PATIENT
  Age: 0 Year
  Sex: Male
  Weight: 5.03 kg

DRUGS (2)
  1. LIVMARLI [Suspect]
     Active Substance: MARALIXIBAT CHLORIDE
     Indication: Alagille syndrome
     Dosage: 0.15 MILLILITER, QD
     Route: 065
     Dates: start: 20231230
  2. LIVMARLI [Suspect]
     Active Substance: MARALIXIBAT CHLORIDE
     Dosage: 0.2 MILLILITER
     Route: 065
     Dates: start: 20240227

REACTIONS (3)
  - Pruritus [Not Recovered/Not Resolved]
  - Bile acids increased [Not Recovered/Not Resolved]
  - Drug ineffective [Unknown]

NARRATIVE: CASE EVENT DATE: 20240222
